FAERS Safety Report 7570780-5 (Version None)
Quarter: 2011Q2

REPORT INFORMATION
  Report Type: 
  Country: None (occurrence: None)
  Receive Date: 20110624
  Receipt Date: 20110513
  Transmission Date: 20111010
  Serious: No
  Sender: FDA-Public Use
  Company Number: US-ALLERGAN-1106662US

PATIENT
  Age: 27 Year
  Sex: Female

DRUGS (1)
  1. LATISSE [Suspect]
     Indication: GROWTH OF EYELASHES
     Dosage: 1 GTT, QHS
     Dates: start: 20110214, end: 20110214

REACTIONS (7)
  - CORNEAL INFECTION [None]
  - PHOTOSENSITIVITY REACTION [None]
  - EYE SWELLING [None]
  - EYE PAIN [None]
  - LACRIMATION INCREASED [None]
  - WRONG TECHNIQUE IN DRUG USAGE PROCESS [None]
  - SCLERAL HYPERAEMIA [None]
